FAERS Safety Report 6293183-2 (Version None)
Quarter: 2009Q3

REPORT INFORMATION
  Report Type: 
  Country: None (occurrence: None)
  Receive Date: 20090731
  Receipt Date: 20090723
  Transmission Date: 20100115
  Serious: Yes (Other)
  Sender: FDA-Public Use
  Company Number: CH-ABBOTT-09P-151-0586921-00

PATIENT
  Age: 40 Year
  Sex: Male

DRUGS (10)
  1. KLACID [Suspect]
     Indication: GASTRITIS
     Route: 048
     Dates: start: 20090619, end: 20090626
  2. KLACID [Interacting]
     Indication: HELICOBACTER INFECTION
  3. KLACID [Interacting]
     Indication: DUODENITIS
  4. ABILIFY [Interacting]
     Indication: PERSONALITY DISORDER
     Route: 048
     Dates: start: 20090427
  5. ABILIFY [Interacting]
  6. CHLORPROTHIXENE [Concomitant]
     Indication: PERSONALITY DISORDER
     Route: 048
     Dates: start: 20061101
  7. LAMOTRIGINE [Concomitant]
     Indication: BRAIN INJURY
     Route: 048
     Dates: start: 20070101
  8. AMITRIPTYLINE HCL [Concomitant]
     Indication: DRUG USE FOR UNKNOWN INDICATION
     Route: 048
     Dates: start: 20081201
  9. AMOXICILLIN [Concomitant]
     Indication: HELICOBACTER INFECTION
     Dates: start: 20090619, end: 20090626
  10. OMEPRAZOL [Concomitant]
     Indication: HELICOBACTER INFECTION
     Dates: start: 20090619, end: 20090626

REACTIONS (5)
  - DRUG INTERACTION [None]
  - DRUG LEVEL INCREASED [None]
  - EXTRAPYRAMIDAL DISORDER [None]
  - MUSCLE RIGIDITY [None]
  - PARKINSONISM [None]
